FAERS Safety Report 6929900-5 (Version None)
Quarter: 2010Q3

REPORT INFORMATION
  Report Type: 
  Country: None (occurrence: None)
  Receive Date: 20100813
  Receipt Date: 20100803
  Transmission Date: 20110219
  Serious: Yes (Hospitalization)
  Sender: FDA-Public Use
  Company Number: 014930

PATIENT
  Sex: Female
  Weight: 57.3 kg

DRUGS (12)
  1. CERTOLIZUMAB PEGOL (CERTOLIZUMAB PEGOL) [Suspect]
     Indication: RHEUMATOID ARTHRITIS
     Dosage: 400 MG, 1X2 WEEKS; SUBCUTANEOUS, 200 MG 1X2 WEEKS; SUBCUTANEOUS, 200 MG 1X2 WEEKS, SUBCUTANEOUS
     Route: 058
     Dates: start: 20060517, end: 20071220
  2. CERTOLIZUMAB PEGOL (CERTOLIZUMAB PEGOL) [Suspect]
     Indication: RHEUMATOID ARTHRITIS
     Dosage: 400 MG, 1X2 WEEKS; SUBCUTANEOUS, 200 MG 1X2 WEEKS; SUBCUTANEOUS, 200 MG 1X2 WEEKS, SUBCUTANEOUS
     Route: 058
     Dates: start: 20080107, end: 20100630
  3. CERTOLIZUMAB PEGOL (CERTOLIZUMAB PEGOL) [Suspect]
     Indication: RHEUMATOID ARTHRITIS
     Dosage: 400 MG, 1X2 WEEKS; SUBCUTANEOUS, 200 MG 1X2 WEEKS; SUBCUTANEOUS, 200 MG 1X2 WEEKS, SUBCUTANEOUS
     Route: 058
     Dates: start: 20100714
  4. METHOTREXATE SODIUM [Concomitant]
  5. PARACETAMOL [Concomitant]
  6. TRAMADOLI HYDROCHLORIDUM [Concomitant]
  7. KETOPROFEN [Concomitant]
  8. YASMIN [Concomitant]
  9. MONTELUKAST SODIUM [Concomitant]
  10. ATROVENT [Concomitant]
  11. BUDESONIDUM [Concomitant]
  12. FORMOTEROL FUMARATE [Concomitant]

REACTIONS (4)
  - ABDOMINAL PAIN LOWER [None]
  - ASTHMA [None]
  - PNEUMONIA [None]
  - PYREXIA [None]
